FAERS Safety Report 16714045 (Version 1)
Quarter: 2019Q3

REPORT INFORMATION
  Report Type: Report from Study
  Country: None (occurrence: AT)
  Receive Date: 20190819
  Receipt Date: 20190819
  Transmission Date: 20191004
  Serious: Yes (Hospitalization, Other)
  Sender: FDA-Public Use
  Company Number: AT-ABBVIE-19K-009-2890490-00

PATIENT
  Age: 64 Year
  Sex: Male

DRUGS (1)
  1. HUMIRA [Suspect]
     Active Substance: ADALIMUMAB
     Indication: RHEUMATOID ARTHRITIS
     Route: 058
     Dates: start: 20141110, end: 2019

REACTIONS (2)
  - Hepatic cancer [Not Recovered/Not Resolved]
  - Liver function test increased [Not Recovered/Not Resolved]
